FAERS Safety Report 4355912-4 (Version None)
Quarter: 2004Q2

REPORT INFORMATION
  Report Type: 
  Country: None (occurrence: None)
  Receive Date: 20040510
  Receipt Date: 20040510
  Transmission Date: 20050107
  Serious: Yes (Other)
  Sender: FDA-Public Use
  Company Number: None

PATIENT
  Age: 34 Year
  Sex: Male
  Weight: 99.7913 kg

DRUGS (1)
  1. PROPRANOLOL [Suspect]
     Indication: ANXIETY

REACTIONS (6)
  - EJACULATION FAILURE [None]
  - ERECTILE DYSFUNCTION [None]
  - LIBIDO DECREASED [None]
  - PROSTATE INFECTION [None]
  - SENSORY LOSS [None]
  - TESTICULAR PAIN [None]
